FAERS Safety Report 18252554 (Version 1)
Quarter: 2020Q3

REPORT INFORMATION
  Report Type: Spontaneous
  Country: US (occurrence: US)
  Receive Date: 20200910
  Receipt Date: 20200910
  Transmission Date: 20201103
  Serious: Yes (Disabling, Other)
  Sender: FDA-Public Use
  Company Number: None

PATIENT
  Age: 60 Year
  Sex: Female
  Weight: 54 kg

DRUGS (3)
  1. GLUTATHIONE SUPERGREENS POWDER [Concomitant]
  2. TERBINAFINE 250MG [Suspect]
     Active Substance: TERBINAFINE
     Indication: TINEA INFECTION
     Dosage: ?          QUANTITY:1 TABLET(S);?
     Route: 048
     Dates: start: 20200807, end: 20200820
  3. FLUOCINONIDE 0.05?% CREAM [Suspect]
     Active Substance: FLUOCINONIDE

REACTIONS (9)
  - Economic problem [None]
  - Impaired quality of life [None]
  - General physical health deterioration [None]
  - Chills [None]
  - Pruritus [None]
  - Condition aggravated [None]
  - Malaise [None]
  - Rash morbilliform [None]
  - Bedridden [None]

NARRATIVE: CASE EVENT DATE: 20200812
